FAERS Safety Report 8827879 (Version 1)
Quarter: 2012Q4

REPORT INFORMATION
  Report Type: 
  Country: DE (occurrence: DE)
  Receive Date: 20121005
  Receipt Date: 20121005
  Transmission Date: 20130627
  Serious: Yes (Death, Other)
  Sender: FDA-Public Use
  Company Number: DE-ALEXION-A201201787

PATIENT

DRUGS (1)
  1. ECULIZUMAB [Suspect]
     Indication: HAEMOLYTIC URAEMIC SYNDROME

REACTIONS (4)
  - Death [Fatal]
  - Convulsion [Unknown]
  - Mechanical ventilation [Unknown]
  - Dialysis [Unknown]
